FAERS Safety Report 5106801-9 (Version None)
Quarter: 2006Q3

REPORT INFORMATION
  Report Type: 
  Country: None (occurrence: None)
  Receive Date: 20060918
  Receipt Date: 20060913
  Transmission Date: 20061208
  Serious: Yes (Hospitalization)
  Sender: FDA-Public Use
  Company Number: US-SANOFI-SYNTHELABO-F01200601964

PATIENT
  Sex: Male

DRUGS (4)
  1. FLUOROURACIL [Suspect]
     Route: 042
     Dates: start: 20060802, end: 20060803
  2. AVASTIN [Suspect]
     Route: 042
     Dates: start: 20060802, end: 20060802
  3. LEUCOVORIN [Suspect]
     Route: 042
     Dates: start: 20060802, end: 20060802
  4. OXALIPLATIN [Suspect]
     Indication: COLON CANCER
     Route: 042
     Dates: start: 20060802, end: 20060802

REACTIONS (1)
  - SYNCOPE [None]
